FAERS Safety Report 15565881 (Version 3)
Quarter: 2018Q4

REPORT INFORMATION
  Report Type: Spontaneous
  Country: CA (occurrence: CA)
  Receive Date: 20181030
  Receipt Date: 20181106
  Transmission Date: 20190205
  Serious: Yes (Other)
  Sender: FDA-Public Use
  Company Number: CA-PFIZER INC-2018439691

PATIENT
  Age: 72 Year
  Sex: Male
  Weight: 70.8 kg

DRUGS (11)
  1. PREDNISONE. [Concomitant]
     Active Substance: PREDNISONE
     Dosage: 55 MG, FOR 2 WEEKS TAPERING BY 5 MG WEEKLY
  2. METHOTREXATE SODIUM. [Suspect]
     Active Substance: METHOTREXATE SODIUM
     Dosage: 2.5 MG, TAKE 10 TABLETS WEEKLY
     Dates: start: 20180801
  3. SILDENAFIL. [Concomitant]
     Active Substance: SILDENAFIL
     Dosage: UNK, AS NEEDED
     Route: 048
  4. VALTREX [Concomitant]
     Active Substance: VALACYCLOVIR HYDROCHLORIDE
     Dosage: TAKE 2 TABLETS, 3X/DAY FOR 10 DAYS
     Route: 048
     Dates: end: 20181001
  5. ASACOL [Concomitant]
     Active Substance: MESALAMINE
     Dosage: 8 DF, UNK (TAKE 8 TABLETS)
  6. PREDNISONE. [Concomitant]
     Active Substance: PREDNISONE
     Dosage: 40 MG, FOR TWO WEEKS TAPERING BY 5 MG WEEKLY
     Dates: start: 201808, end: 201810
  7. TESTOSTERONE. [Concomitant]
     Active Substance: TESTOSTERONE
     Dosage: 40 MG, (TAKE TWO TABLETS) 2X/DAY
     Route: 048
  8. TADALAFIL. [Concomitant]
     Active Substance: TADALAFIL
     Dosage: UNK, AS NEEDED
     Route: 048
  9. VITAMIN B12 [Concomitant]
     Active Substance: CYANOCOBALAMIN
     Dosage: UNK, ONCE MONTHLY
  10. FOLIC ACID. [Concomitant]
     Active Substance: FOLIC ACID
     Dosage: 1 MG, DAILY EXCEPT MTX DAYS
     Route: 048
  11. INFLECTRA [INFLIXIMAB] [Concomitant]
     Indication: COLITIS ULCERATIVE
     Dosage: 5 MG/KG, FOR WEEKS 0, 2, 6 AND EVERY 8 WEEKS THEREAFTER)
     Route: 042
     Dates: start: 20181029

REACTIONS (4)
  - Drug ineffective [Unknown]
  - Herpes zoster [Unknown]
  - Skin laceration [Recovered/Resolved]
  - Seasonal allergy [Unknown]

NARRATIVE: CASE EVENT DATE: 2018
